FAERS Safety Report 6220716-4 (Version None)
Quarter: 2009Q2

REPORT INFORMATION
  Report Type: 
  Country: None (occurrence: None)
  Receive Date: 20090610
  Receipt Date: 20090608
  Transmission Date: 20091009
  Serious: Yes (Hospitalization, Other)
  Sender: FDA-Public Use
  Company Number: UG-ROXANE LABORATORIES, INC.-2009-RO-00564RO

PATIENT
  Age: 60 Year
  Sex: Female

DRUGS (4)
  1. ZIDOVUDINE [Suspect]
     Indication: ANTIRETROVIRAL THERAPY
  2. STAVUDINE/LAMIVUDINE/NEVIRAPINE [Suspect]
     Indication: ANTIRETROVIRAL THERAPY
  3. TENOFORVIR/EMTRICITABINE/EFAVIRENZ [Concomitant]
     Indication: ANTIRETROVIRAL THERAPY
  4. ANTI-TUBERCULOSIS DRUGS [Concomitant]
     Indication: PULMONARY TUBERCULOSIS

REACTIONS (3)
  - HYPERLACTACIDAEMIA [None]
  - LIPOATROPHY [None]
  - PULMONARY TUBERCULOSIS [None]
